FAERS Safety Report 14415113 (Version 1)
Quarter: 2018Q1

REPORT INFORMATION
  Report Type: Spontaneous
  Country: US (occurrence: US)
  Receive Date: 20180118
  Receipt Date: 20180118
  Transmission Date: 20180509
  Serious: Yes (Hospitalization)
  Sender: FDA-Public Use
  Company Number: None

PATIENT
  Age: 77 Year
  Sex: Male

DRUGS (1)
  1. DALTEPARIN [Suspect]
     Active Substance: DALTEPARIN
     Indication: DEEP VEIN THROMBOSIS
     Dates: start: 20160823, end: 20170919

REACTIONS (3)
  - Central nervous system lesion [None]
  - Haemorrhage intracranial [None]
  - Confusional state [None]

NARRATIVE: CASE EVENT DATE: 20170919
